FAERS Safety Report 24061209 (Version 1)
Quarter: 2024Q3

REPORT INFORMATION
  Report Type: Spontaneous
  Country: US (occurrence: None)
  Receive Date: 20240705
  Receipt Date: 20240705
  Transmission Date: 20241016
  Serious: Yes (Disabling, Other)
  Sender: Public
  Company Number: None

PATIENT
  Age: 48 Year
  Sex: Male
  Weight: 111.15 kg

DRUGS (9)
  1. WEGOVY [Suspect]
     Active Substance: SEMAGLUTIDE
     Indication: Obesity
     Dosage: 4 INJECTIONS ONCE WEEKLY SUBCUTANEOUS
     Route: 058
     Dates: start: 20230801
  2. WEGOVY [Suspect]
     Active Substance: SEMAGLUTIDE
     Indication: Weight decreased
  3. AMLODIPINE [Concomitant]
     Active Substance: AMLODIPINE BESYLATE
  4. PEPCID AC [Concomitant]
     Active Substance: FAMOTIDINE
  5. ALEVE [Concomitant]
     Active Substance: NAPROXEN SODIUM
  6. VITAMINS [Concomitant]
     Active Substance: VITAMINS
  7. balance of nature fruit and vegetable supplements [Concomitant]
  8. focus factor vitamin supplement [Concomitant]
  9. OZEMPIC [Suspect]
     Active Substance: SEMAGLUTIDE

REACTIONS (2)
  - Papilloedema [None]
  - Optic ischaemic neuropathy [None]

NARRATIVE: CASE EVENT DATE: 20240522
